FAERS Safety Report 23807780 (Version 1)
Quarter: 2024Q2

REPORT INFORMATION
  Report Type: Spontaneous
  Country: CA (occurrence: CA)
  Receive Date: 20240502
  Receipt Date: 20240502
  Transmission Date: 20240716
  Serious: Yes (Hospitalization, Other)
  Sender: FDA-Public Use
  Company Number: CA-CHEPLA-2024005485

PATIENT
  Age: 49 Year
  Sex: Male

DRUGS (14)
  1. HYDROXYUREA [Suspect]
     Active Substance: HYDROXYUREA
  2. ALLOPURINOL [Suspect]
     Active Substance: ALLOPURINOL
  3. BECLOMETHASONE DIPROPIONATE\CLOTRIMAZOLE [Suspect]
     Active Substance: BECLOMETHASONE DIPROPIONATE\CLOTRIMAZOLE
  4. CHOLECALCIFEROL [Suspect]
     Active Substance: CHOLECALCIFEROL
  5. CYANOCOBALAMIN [Suspect]
     Active Substance: CYANOCOBALAMIN
  6. BETAMETHASONE VALERATE\FUSIDIC ACID [Suspect]
     Active Substance: BETAMETHASONE VALERATE\FUSIDIC ACID
  7. HYDROMORPHONE [Suspect]
     Active Substance: HYDROMORPHONE
  8. LEVOTHYROXINE SODIUM [Suspect]
     Active Substance: LEVOTHYROXINE SODIUM
  9. LIDOCAINE [Suspect]
     Active Substance: LIDOCAINE
  10. MOXIFLOXACIN [Suspect]
     Active Substance: MOXIFLOXACIN
  11. POTASSIUM PHOSPHATE, MONOBASIC [Suspect]
     Active Substance: POTASSIUM PHOSPHATE, MONOBASIC
  12. SODIUM BICARBONATE [Suspect]
     Active Substance: SODIUM BICARBONATE
  13. SODIUM PHOSPHATE [Suspect]
     Active Substance: SODIUM PHOSPHATE
  14. TRIAMCINOLONE [Suspect]
     Active Substance: TRIAMCINOLONE

REACTIONS (1)
  - Febrile neutropenia [Unknown]
